FAERS Safety Report 6237895-5 (Version None)
Quarter: 2009Q2

REPORT INFORMATION
  Report Type: 
  Country: None (occurrence: None)
  Receive Date: 20090620
  Receipt Date: 20090608
  Transmission Date: 20091009
  Serious: Yes (Death)
  Sender: FDA-Public Use
  Company Number: US-MYLANLABS-2009S1010127

PATIENT
  Age: 27 Year
  Sex: Female

DRUGS (9)
  1. HYDROCODONE BITARTRATE [Suspect]
     Indication: MUSCULOSKELETAL PAIN
     Dosage: AS NEEDED
     Route: 048
  2. HYDROCODONE BITARTRATE [Suspect]
     Route: 048
  3. OXYCODONE HCL [Suspect]
     Indication: MUSCULOSKELETAL PAIN
  4. MORPHINE [Suspect]
     Indication: MUSCULOSKELETAL PAIN
     Dosage: EVERY MORNING
  5. METHADONE [Suspect]
     Indication: MUSCULOSKELETAL PAIN
     Dosage: AT NIGHT
  6. DOXEPIN [Suspect]
  7. DIAZEPAM [Suspect]
  8. NORDAZEPAM [Suspect]
  9. TEMAZEPAM [Suspect]

REACTIONS (2)
  - OVERDOSE [None]
  - SYNCOPE [None]
